FAERS Safety Report 5019891-9 (Version None)
Quarter: 2006Q2

REPORT INFORMATION
  Report Type: 
  Country: None (occurrence: None)
  Receive Date: 20060605
  Receipt Date: 20060605
  Transmission Date: 20061013
  Serious: Yes (Hospitalization)
  Sender: FDA-Public Use
  Company Number: None

PATIENT
  Sex: Male
  Weight: 57.6068 kg

DRUGS (6)
  1. SARGRAMOSTIM VS.  PLACEBO  250 MICROGRAMS  BERLEX [Suspect]
     Indication: HEPATITIS B IMMUNISATION
     Dosage: 250 MICROGRAMS 2 INDIVIDUAL DOSES IM
     Route: 030
     Dates: start: 20060109, end: 20060130
  2. PLACEBO [Suspect]
  3. HEPATITIS B VACCINE [Concomitant]
  4. TRUVADA [Concomitant]
  5. SUSTIVA [Concomitant]
  6. LASIX [Concomitant]

REACTIONS (4)
  - COUGH [None]
  - DYSPNOEA [None]
  - OEDEMA PERIPHERAL [None]
  - RIGHT VENTRICULAR FAILURE [None]
